FAERS Safety Report 14026473 (Version 1)
Quarter: 2017Q3

REPORT INFORMATION
  Report Type: Spontaneous
  Country: US (occurrence: US)
  Receive Date: 20170929
  Receipt Date: 20170929
  Transmission Date: 20171128
  Serious: Yes (Hospitalization)
  Sender: FDA-Public Use
  Company Number: US-ACTELION-A-US2017-160093

PATIENT
  Age: 12 Year
  Sex: Female

DRUGS (5)
  1. VELETRI [Suspect]
     Active Substance: EPOPROSTENOL
     Indication: PULMONARY ARTERIAL HYPERTENSION
     Dosage: 44 NG/KG, PER MIN
     Route: 042
     Dates: start: 20170803
  2. LASIX [Concomitant]
     Active Substance: FUROSEMIDE
     Dosage: 40 MG, Q12HRS
  3. TRACLEER [Concomitant]
     Active Substance: BOSENTAN
     Indication: PULMONARY ARTERIAL HYPERTENSION
     Dosage: 62.5 MG, BID
  4. SILDENAFIL. [Concomitant]
     Active Substance: SILDENAFIL
     Dosage: 20 MG, TID
  5. DIGOXIN. [Concomitant]
     Active Substance: DIGOXIN
     Dosage: 150 MCG, BID

REACTIONS (3)
  - Drug intolerance [Unknown]
  - Nausea [Recovered/Resolved]
  - Product physical issue [Unknown]
